FAERS Safety Report 6720142-5 (Version None)
Quarter: 2010Q2

REPORT INFORMATION
  Report Type: 
  Country: None (occurrence: None)
  Receive Date: 20100511
  Receipt Date: 20100426
  Transmission Date: 20101027
  Serious: No
  Sender: FDA-Public Use
  Company Number: US-B.I. PHARMACEUTICALS,INC./RIDGEFIELD-2010-BP-03294BP

PATIENT
  Sex: Female

DRUGS (4)
  1. COMBIVENT [Suspect]
     Dosage: 6 PUF
     Route: 055
     Dates: start: 20091001
  2. PROPRANOLOL [Concomitant]
     Dosage: 180 MG
  3. AMLODIPINE [Concomitant]
     Dosage: 5 MG
  4. DIAZEPAM [Concomitant]
     Dosage: 10 MG

REACTIONS (3)
  - DIZZINESS [None]
  - FEELING ABNORMAL [None]
  - VERTIGO [None]
